FAERS Safety Report 8764840 (Version 1)
Quarter: 2012Q4

REPORT INFORMATION
  Report Type: 
  Country: IT (occurrence: IT)
  Receive Date: 20120831
  Receipt Date: 20120831
  Transmission Date: 20130627
  Serious: Yes (Hospitalization)
  Sender: FDA-Public Use
  Company Number: IT-ROCHE-1109613

PATIENT
  Age: 62 Year
  Sex: Female

DRUGS (1)
  1. CEFTRIAXONE SODIUM [Suspect]
     Indication: BACTERIAL INFECTION
     Route: 030
     Dates: start: 20120626, end: 20120626

REACTIONS (3)
  - Anaphylactic shock [Not Recovered/Not Resolved]
  - Anoxia [Not Recovered/Not Resolved]
  - Cardio-respiratory arrest [Not Recovered/Not Resolved]
